FAERS Safety Report 7097337-7 (Version None)
Quarter: 2010Q4

REPORT INFORMATION
  Report Type: 
  Country: None (occurrence: None)
  Receive Date: 20101103
  Receipt Date: 20101021
  Transmission Date: 20110411
  Serious: Yes (Hospitalization)
  Sender: FDA-Public Use
  Company Number: 017960

PATIENT
  Sex: Female
  Weight: 84.8 kg

DRUGS (5)
  1. KEPPRA [Suspect]
     Indication: GRAND MAL CONVULSION
     Dosage: 1000 MG BID ORAL
     Route: 048
     Dates: start: 20100629
  2. LISINOPRIL [Concomitant]
  3. ASPIRIN [Concomitant]
  4. NIACIN [Concomitant]
  5. PAXIL [Concomitant]

REACTIONS (8)
  - CONVULSION [None]
  - DRUG DOSE OMISSION [None]
  - HEADACHE [None]
  - MEMORY IMPAIRMENT [None]
  - MENTAL IMPAIRMENT [None]
  - NAUSEA [None]
  - NECK PAIN [None]
  - PANIC ATTACK [None]
